FAERS Safety Report 10189525 (Version 1)
Quarter: 2014Q2

REPORT INFORMATION
  Report Type: Spontaneous
  Country: CL (occurrence: CL)
  Receive Date: 20140522
  Receipt Date: 20140522
  Transmission Date: 20141212
  Serious: Yes (Other)
  Sender: FDA-Public Use
  Company Number: CL-PFIZER INC-2014137768

PATIENT
  Age: 66 Year
  Sex: Female

DRUGS (7)
  1. XALATAN [Suspect]
     Indication: GLAUCOMA
     Dosage: 1 DROP ON EACH EYE, 1X/DAY
     Route: 047
  2. REFRESH [Concomitant]
  3. LOSARTAN [Concomitant]
     Dosage: UNK
  4. AMLODIPINE [Concomitant]
     Dosage: UNK
  5. TRAZODONE [Concomitant]
     Dosage: UNK
     Dates: start: 2004
  6. ASPIRIN ^BAYER^ [Concomitant]
     Dosage: UNK
  7. ACETAMINOPHEN [Concomitant]

REACTIONS (3)
  - Back disorder [Unknown]
  - Chronic obstructive pulmonary disease [Unknown]
  - Amnesia [Not Recovered/Not Resolved]
